FAERS Safety Report 7479189-6 (Version None)
Quarter: 2011Q2

REPORT INFORMATION
  Report Type: 
  Country: None (occurrence: None)
  Receive Date: 20110513
  Receipt Date: 20110503
  Transmission Date: 20111010
  Serious: Yes (Hospitalization)
  Sender: FDA-Public Use
  Company Number: A0858977A

PATIENT
  Sex: Male
  Weight: 113.6 kg

DRUGS (8)
  1. AVANDIA [Suspect]
     Dosage: 4MG PER DAY
     Route: 048
     Dates: end: 20090101
  2. LIPITOR [Concomitant]
  3. GLUCOTROL [Concomitant]
  4. TIAZAC [Concomitant]
  5. AVALIDE [Concomitant]
  6. PREVACID [Concomitant]
  7. CLARITIN [Concomitant]
  8. ZETIA [Concomitant]

REACTIONS (2)
  - MYOCARDIAL INFARCTION [None]
  - CARDIAC FAILURE CONGESTIVE [None]
